FAERS Safety Report 17357394 (Version 1)
Quarter: 2020Q1

REPORT INFORMATION
  Report Type: Report from Study
  Country: US (occurrence: US)
  Receive Date: 20200131
  Receipt Date: 20200131
  Transmission Date: 20200409
  Serious: Yes (Hospitalization, Other)
  Sender: FDA-Public Use
  Company Number: US-ALLERGAN-1953624US

PATIENT
  Sex: Female

DRUGS (3)
  1. MILNACIPRAN 50MG TAB (TBD) [Suspect]
     Active Substance: MILNACIPRAN
     Indication: FIBROMYALGIA
     Dosage: 0.5 DF, BID
     Route: 048
     Dates: start: 201912, end: 20191221
  2. MILNACIPRAN 50MG TAB (TBD) [Suspect]
     Active Substance: MILNACIPRAN
     Dosage: 0.5 DF, QD
     Route: 048
     Dates: start: 201912
  3. NEURONTIN [Concomitant]
     Active Substance: GABAPENTIN
     Indication: NERVE INJURY
     Dosage: 300 MG, TID
     Dates: start: 2011

REACTIONS (6)
  - Visual acuity reduced [Recovered/Resolved]
  - Electrocardiogram abnormal [Unknown]
  - Chest pain [Not Recovered/Not Resolved]
  - Hyperhidrosis [Recovered/Resolved]
  - Stroke in evolution [Unknown]
  - Heart rate increased [Recovered/Resolved]

NARRATIVE: CASE EVENT DATE: 201912
